FAERS Safety Report 5123177-1 (Version None)
Quarter: 2006Q4

REPORT INFORMATION
  Report Type: 
  Country: None (occurrence: None)
  Receive Date: 20061005
  Receipt Date: 20060925
  Transmission Date: 20070319
  Serious: Yes (Hospitalization)
  Sender: FDA-Public Use
  Company Number: 2006079768

PATIENT
  Age: 28 Year
  Sex: Female

DRUGS (5)
  1. DEPO-PROVERA [Suspect]
     Indication: CONTRACEPTION
     Dosage: SEE IMAGE
     Route: 030
     Dates: start: 19980101, end: 19980101
  2. DEPO-PROVERA [Suspect]
     Indication: CONTRACEPTION
     Dosage: SEE IMAGE
     Route: 030
     Dates: start: 20041201, end: 20041201
  3. DEPO-PROVERA [Suspect]
     Indication: CONTRACEPTION
     Dosage: SEE IMAGE
     Route: 030
     Dates: start: 20060301, end: 20060301
  4. DIAZEPAM [Concomitant]
  5. ROHYPNOL (FLUNITRAZEPAM) [Concomitant]

REACTIONS (4)
  - ALCOHOLISM [None]
  - AMENORRHOEA [None]
  - FACIAL OPERATION [None]
  - WEIGHT INCREASED [None]
